FAERS Safety Report 9149499 (Version 1)
Quarter: 2013Q1

REPORT INFORMATION
  Report Type: Report from Study
  Country: CA (occurrence: CA)
  Receive Date: 20130308
  Receipt Date: 20130308
  Transmission Date: 20140127
  Serious: Yes (Hospitalization)
  Sender: FDA-Public Use
  Company Number: CA-JNJFOC-20130300464

PATIENT
  Age: 22 Year
  Sex: Female
  Weight: 85 kg

DRUGS (5)
  1. REMICADE [Suspect]
     Indication: CROHN^S DISEASE
     Route: 042
     Dates: start: 20091014
  2. MULTIVITAMIN TABLET [Concomitant]
     Route: 048
  3. DESMOPRESSIN [Concomitant]
     Dosage: IN AM
     Route: 048
  4. DESMOPRESSIN [Concomitant]
     Route: 048
  5. METHADONE [Concomitant]
     Route: 048

REACTIONS (3)
  - Diarrhoea haemorrhagic [Recovered/Resolved]
  - Abdominal pain [Recovered/Resolved]
  - Blood iron decreased [Recovering/Resolving]
